FAERS Safety Report 6127238-X (Version None)
Quarter: 2009Q1

REPORT INFORMATION
  Report Type: 
  Country: None (occurrence: None)
  Receive Date: 20090318
  Receipt Date: 20090311
  Transmission Date: 20090719
  Serious: Yes (Death, Hospitalization)
  Sender: FDA-Public Use
  Company Number: 09P-028-0560124-00

PATIENT
  Age: 7 Month
  Sex: Female

DRUGS (7)
  1. SYNAGIS [Suspect]
     Indication: ANTIVIRAL PROPHYLAXIS
     Dosage: 83 MG
     Route: 030
     Dates: start: 20081216, end: 20081216
  2. RANITIDINE [Concomitant]
  3. ACETYLSALICYLIC ACID [Concomitant]
  4. FUROSEMIDE [Concomitant]
  5. CAPTOPRIL [Concomitant]
  6. SPIRONOLACTONE [Concomitant]
  7. ERGOCALCIFEROL [Concomitant]

REACTIONS (7)
  - ACIDOSIS [None]
  - ATELECTASIS [None]
  - CARDIAC DEATH [None]
  - LEFT VENTRICULAR DYSFUNCTION [None]
  - LUNG CONSOLIDATION [None]
  - RIGHT ATRIAL DILATATION [None]
  - TACHYCARDIA [None]
